FAERS Safety Report 4431877-1 (Version None)
Quarter: 2004Q3

REPORT INFORMATION
  Report Type: 
  Country: None (occurrence: None)
  Receive Date: 20040818
  Receipt Date: 20040803
  Transmission Date: 20050211
  Serious: Yes (Death, Life-Threatening, Hospitalization)
  Sender: FDA-Public Use
  Company Number: A03200402598

PATIENT
  Age: 53 Year
  Sex: Male

DRUGS (13)
  1. PLAVIX [Suspect]
     Indication: THROMBOSIS
     Dosage: ORAL
     Route: 048
     Dates: end: 20040701
  2. MICARDIS [Suspect]
     Dosage: ORAL
     Route: 048
     Dates: start: 20030926, end: 20040620
  3. COZAAR [Suspect]
     Dates: start: 20030926, end: 20040620
  4. HUMALIN - INSULIN - SOLUTION [Suspect]
     Indication: DIABETES MELLITUS
     Dosage: SUBCUTANEOUS
     Route: 058
     Dates: end: 20040720
  5. HUMALOG [Suspect]
     Indication: DIABETES MELLITUS
     Dosage: SUBCUTANEOUS
     Route: 058
     Dates: end: 20040701
  6. FUROSEMIDE [Suspect]
     Indication: HYPERTENSION
     Dates: end: 20040620
  7. ZAROXOLYN [Suspect]
     Indication: FLUID RETENTION
     Dates: end: 20040623
  8. ZOLOFT [Suspect]
     Indication: DEPRESSION
     Dates: end: 20040701
  9. METOPROLOL SUCCINATE [Concomitant]
  10. SODIUM BICARBONATE [Concomitant]
  11. ISOSORBIDE [Concomitant]
  12. GABAPENTIN [Concomitant]
  13. BUTORPHANOL TARTRATE [Concomitant]

REACTIONS (5)
  - CARDIAC ARREST [None]
  - CARDIAC FAILURE CONGESTIVE [None]
  - DIALYSIS [None]
  - PNEUMONIA [None]
  - RENAL FAILURE CHRONIC [None]
